FAERS Safety Report 20211707 (Version 1)
Quarter: 2021Q4

REPORT INFORMATION
  Report Type: Spontaneous
  Country: US (occurrence: None)
  Receive Date: 20211221
  Receipt Date: 20211221
  Transmission Date: 20220304
  Serious: Yes (Hospitalization)
  Sender: FDA-Public Use
  Company Number: None

PATIENT
  Sex: Male
  Weight: 83.4 kg

DRUGS (4)
  1. DACARBAZINE [Suspect]
     Active Substance: DACARBAZINE
  2. DOXORUBICIN HYDROCHLORIDE [Concomitant]
  3. BRENTUXIMAB VEDOTIN [Concomitant]
     Active Substance: BRENTUXIMAB VEDOTIN
  4. VINBLASTINE SULFATE [Concomitant]

REACTIONS (7)
  - Septic shock [None]
  - Diarrhoea [None]
  - Klebsiella test positive [None]
  - Pseudomonas test positive [None]
  - Enterobacter test positive [None]
  - Escherichia test positive [None]
  - Headache [None]

NARRATIVE: CASE EVENT DATE: 20211016
